FAERS Safety Report 8241807 (Version 2)
Quarter: 2012Q4

REPORT INFORMATION
  Report Type: 
  Country: US (occurrence: US)
  Receive Date: 20111111
  Receipt Date: 20121221
  Transmission Date: 20130627
  Serious: Yes (Other)
  Sender: FDA-Public Use
  Company Number: US-ROCHE-1010265

PATIENT
  Sex: Female
  Weight: 99.88 kg

DRUGS (2)
  1. ACCUTANE [Suspect]
     Indication: ACNE
     Route: 048
     Dates: start: 19931019, end: 19940328
  2. ACCUTANE [Suspect]
     Route: 048
     Dates: start: 19960703, end: 19960922

REACTIONS (8)
  - Colitis ulcerative [Unknown]
  - Depression [Unknown]
  - Injury [Unknown]
  - Inflammatory bowel disease [Unknown]
  - Suicidal ideation [Unknown]
  - Large intestine polyp [Unknown]
  - Bipolar disorder [Unknown]
  - Irritable bowel syndrome [Unknown]
